FAERS Safety Report 10421452 (Version 1)
Quarter: 2014Q3

REPORT INFORMATION
  Report Type: Spontaneous
  Country: US (occurrence: US)
  Receive Date: 20140901
  Receipt Date: 20140901
  Transmission Date: 20150326
  Serious: No
  Sender: FDA-Public Use
  Company Number: US-ASTRAZENECA-2014SE62281

PATIENT
  Age: 51 Year
  Sex: Female
  Weight: 94.8 kg

DRUGS (6)
  1. LISINOPRIL. [Suspect]
     Active Substance: LISINOPRIL
     Indication: BLOOD PRESSURE ABNORMAL
     Route: 048
     Dates: start: 2011
  2. GLYBURIDE. [Concomitant]
     Active Substance: GLYBURIDE
     Indication: DIABETES MELLITUS
     Dosage: 1 TAB BID
     Route: 048
     Dates: start: 2013
  3. CITALOPRAM [Concomitant]
     Active Substance: CITALOPRAM HYDROBROMIDE
     Indication: DEPRESSION
     Dosage: 1 TAB HS
     Route: 048
     Dates: start: 2013
  4. ROPINOROLE [Concomitant]
     Indication: RESTLESS LEGS SYNDROME
     Dosage: 1 TAB HS
     Route: 048
     Dates: start: 2013
  5. SYMBICORT [Suspect]
     Active Substance: BUDESONIDE\FORMOTEROL FUMARATE DIHYDRATE
     Indication: COUGH
     Dosage: 2 PUFFS BID 80 4.5MCG
     Route: 055
     Dates: start: 2014
  6. SIMVASTATIN. [Concomitant]
     Active Substance: SIMVASTATIN
     Indication: BLOOD CHOLESTEROL
     Dosage: 1 TAB DAILY
     Route: 048
     Dates: start: 2011

REACTIONS (6)
  - Dysphonia [Unknown]
  - Dysarthria [Unknown]
  - Off label use [Unknown]
  - Sensation of foreign body [Unknown]
  - Laryngitis [Unknown]
  - Drug dose omission [Unknown]

NARRATIVE: CASE EVENT DATE: 2014
